FAERS Safety Report 21439644 (Version 2)
Quarter: 2022Q4

REPORT INFORMATION
  Report Type: Spontaneous
  Country: US (occurrence: US)
  Receive Date: 20221011
  Receipt Date: 20221017
  Transmission Date: 20230113
  Serious: No
  Sender: FDA-Public Use
  Company Number: US-PFIZER INC-202201213081

PATIENT
  Age: 77 Year
  Sex: Male

DRUGS (13)
  1. PAXLOVID [Suspect]
     Active Substance: NIRMATRELVIR\RITONAVIR
     Indication: COVID-19 treatment
     Dosage: UNK
     Dates: start: 20220926, end: 20221001
  2. SIMVASTATIN [Suspect]
     Active Substance: SIMVASTATIN
     Dosage: 20 MG
     Dates: start: 20220912, end: 20221008
  3. LEVOXYL [Concomitant]
     Active Substance: LEVOTHYROXINE SODIUM
     Dosage: 100 UG
     Dates: start: 20220912, end: 20221008
  4. ACYCLOVIR [Concomitant]
     Active Substance: ACYCLOVIR
     Dosage: 400 MG
     Dates: start: 20220912, end: 20221008
  5. ASPIRIN [Concomitant]
     Active Substance: ASPIRIN
     Dosage: 81 MG
     Dates: start: 20220915, end: 20221006
  6. OMEGA-3 FATTY ACIDS [Concomitant]
     Active Substance: OMEGA-3 FATTY ACIDS
     Dosage: UNK
     Dates: start: 20220912, end: 20221008
  7. SUPER B COMPLEX [VITAMIN B COMPLEX] [Concomitant]
     Dosage: UNK
     Dates: start: 20220912, end: 20221008
  8. VITAMIN D NOS [Concomitant]
     Active Substance: VITAMIN D NOS
     Dosage: 2000 IU
     Dates: start: 20220912, end: 20221008
  9. VITAMIN C WITH ROSE HIPS [ASCORBIC ACID] [Concomitant]
     Dosage: 500 MG
     Dates: start: 20220912, end: 20221008
  10. GLUCOSAMINE + CHONDROITIN TRIPLE STRENGTH [Concomitant]
     Dosage: UNK
     Dates: start: 20220912, end: 20221008
  11. COENZYME Q10 [Concomitant]
     Active Substance: DIETARY SUPPLEMENT\UBIDECARENONE
     Dosage: 200 MG
     Dates: start: 20220912, end: 20221008
  12. PSYLLIUM HUSKS [Concomitant]
     Active Substance: PSYLLIUM HUSK
     Dosage: 2000 MG
     Dates: start: 20220912, end: 20221008
  13. SAMBUCOL BLACK ELDERBERRY [Concomitant]
     Dosage: 1000 MG
     Dates: start: 20220912, end: 20221008

REACTIONS (3)
  - Contraindicated product administered [Unknown]
  - Disease recurrence [Not Recovered/Not Resolved]
  - COVID-19 [Not Recovered/Not Resolved]

NARRATIVE: CASE EVENT DATE: 20220926
